FAERS Safety Report 11656629 (Version 2)
Quarter: 2015Q4

REPORT INFORMATION
  Report Type: Spontaneous
  Country: CH (occurrence: CH)
  Receive Date: 20151023
  Receipt Date: 20151026
  Transmission Date: 20160304
  Serious: Yes (Death, Other)
  Sender: FDA-Public Use
  Company Number: CH-ASTRAZENECA-2015SF02068

PATIENT
  Age: 89 Year
  Sex: Female
  Weight: 49 kg

DRUGS (21)
  1. EUTHYROX [Concomitant]
     Active Substance: LEVOTHYROXINE SODIUM
     Route: 048
     Dates: start: 20150513, end: 20150527
  2. RINGER LACTAT [Concomitant]
     Route: 042
     Dates: start: 20150526, end: 20150527
  3. RISPERDAL [Interacting]
     Active Substance: RISPERIDONE
     Route: 048
     Dates: start: 20150505, end: 20150507
  4. CIPRALEX [Interacting]
     Active Substance: ESCITALOPRAM OXALATE
     Route: 048
     Dates: start: 20150520, end: 20150528
  5. ATORVASTATIN [Concomitant]
     Active Substance: ATORVASTATIN
     Route: 048
     Dates: start: 20150513, end: 20150523
  6. ADALAT [Concomitant]
     Active Substance: NIFEDIPINE
     Route: 048
     Dates: start: 20150519
  7. EXELON PATCH [Concomitant]
     Active Substance: RIVASTIGMINE
     Route: 062
  8. RISPERDAL [Interacting]
     Active Substance: RISPERIDONE
     Route: 048
     Dates: end: 20150528
  9. COVERSUM [Concomitant]
     Active Substance: PERINDOPRIL
     Route: 048
     Dates: start: 20110908, end: 20150528
  10. COVERSUM [Concomitant]
     Active Substance: PERINDOPRIL
     Route: 048
     Dates: start: 20150521, end: 20150528
  11. TEMESTA [Concomitant]
     Active Substance: LORAZEPAM
     Route: 048
     Dates: start: 20150513
  12. TEMESTA [Concomitant]
     Active Substance: LORAZEPAM
     Route: 048
     Dates: start: 20150521
  13. SEROQUEL [Suspect]
     Active Substance: QUETIAPINE FUMARATE
     Route: 048
  14. COVERSUM [Concomitant]
     Active Substance: PERINDOPRIL
     Route: 048
     Dates: start: 20110908, end: 20150528
  15. TEMESTA [Concomitant]
     Active Substance: LORAZEPAM
     Route: 048
     Dates: start: 20150527
  16. RISPERDAL [Interacting]
     Active Substance: RISPERIDONE
     Route: 048
     Dates: start: 20150508, end: 20150528
  17. TEMESTA [Concomitant]
     Active Substance: LORAZEPAM
     Route: 048
     Dates: start: 20150515
  18. TEMESTA [Concomitant]
     Active Substance: LORAZEPAM
     Route: 048
     Dates: start: 20150516
  19. ASPIRIN CARDIO [Concomitant]
     Active Substance: ASPIRIN
     Route: 048
     Dates: start: 20110908
  20. MORPHINE [Concomitant]
     Active Substance: MORPHINE
     Route: 048
     Dates: start: 20150527, end: 20150527
  21. NOVALGIN [Concomitant]
     Active Substance: METAMIZOLE SODIUM
     Route: 048
     Dates: start: 20150520, end: 20150521

REACTIONS (3)
  - General physical health deterioration [Fatal]
  - Drug interaction [Unknown]
  - Cardiac failure [Fatal]

NARRATIVE: CASE EVENT DATE: 20150526
